FAERS Safety Report 20871735 (Version 2)
Quarter: 2024Q1

REPORT INFORMATION
  Report Type: Spontaneous
  Country: GB (occurrence: GB)
  Receive Date: 20220525
  Receipt Date: 20240130
  Transmission Date: 20240410
  Serious: Yes (Hospitalization, Other)
  Sender: FDA-Public Use
  Company Number: GB-VERTEX PHARMACEUTICALS-2022-007867

PATIENT
  Sex: Female

DRUGS (7)
  1. ELEXACAFTOR\IVACAFTOR\TEZACAFTOR [Suspect]
     Active Substance: ELEXACAFTOR\IVACAFTOR\TEZACAFTOR
     Indication: Cystic fibrosis
     Dosage: 2 TABS (75 IVA/ 50MG TEZA/ 100MG ELEXA) ONCE A DAY
     Route: 048
     Dates: start: 202204, end: 202204
  2. KALYDECO [Suspect]
     Active Substance: IVACAFTOR
     Indication: Cystic fibrosis
     Dosage: UNK
     Route: 048
     Dates: start: 202204, end: 202204
  3. CREON [Concomitant]
     Active Substance: PANCRELIPASE AMYLASE\PANCRELIPASE LIPASE\PANCRELIPASE PROTEASE
     Dosage: 25000
  4. AZITHROMYCIN [Concomitant]
     Active Substance: AZITHROMYCIN
  5. TOPIRAMATE [Concomitant]
     Active Substance: TOPIRAMATE
  6. CANDESARTAN [Concomitant]
     Active Substance: CANDESARTAN
  7. URSODIOL [Concomitant]
     Active Substance: URSODIOL

REACTIONS (2)
  - Seizure [Unknown]
  - Hospitalisation [Unknown]

NARRATIVE: CASE EVENT DATE: 20220101
